FAERS Safety Report 7582181-4 (Version None)
Quarter: 2011Q2

REPORT INFORMATION
  Report Type: 
  Country: None (occurrence: None)
  Receive Date: 20110630
  Receipt Date: 20110621
  Transmission Date: 20111010
  Serious: No
  Sender: FDA-Public Use
  Company Number: US-BIOGENIDEC-2011BI023264

PATIENT
  Age: 44 Year
  Sex: Female

DRUGS (1)
  1. AVONEX [Suspect]
     Indication: MULTIPLE SCLEROSIS
     Route: 030
     Dates: start: 20110616

REACTIONS (5)
  - HEAD TITUBATION [None]
  - PAIN IN EXTREMITY [None]
  - EYE MOVEMENT DISORDER [None]
  - FEAR [None]
  - PALPITATIONS [None]
